FAERS Safety Report 9036887 (Version 1)
Quarter: 2013Q1

REPORT INFORMATION
  Report Type: Spontaneous
  Country: US (occurrence: None)
  Receive Date: 20130118
  Receipt Date: 20130118
  Transmission Date: 20140127
  Serious: Yes (Other)
  Sender: FDA-Public Use
  Company Number: None

PATIENT
  Age: 31 Year
  Sex: Male
  Weight: 73.48 kg

DRUGS (1)
  1. OXYCONTIN [Suspect]
     Indication: INTERVERTEBRAL DISC PROTRUSION
     Dates: start: 20121019, end: 20121218

REACTIONS (6)
  - Nausea [None]
  - Dyspepsia [None]
  - Dizziness [None]
  - Dyspepsia [None]
  - Feeling abnormal [None]
  - Gastric disorder [None]
